FAERS Safety Report 4673888-7 (Version None)
Quarter: 2005Q2

REPORT INFORMATION
  Report Type: 
  Country: None (occurrence: None)
  Receive Date: 20050523
  Receipt Date: 20050207
  Transmission Date: 20051028
  Serious: Yes (Other)
  Sender: FDA-Public Use
  Company Number: HQWYE328414FEB05

PATIENT
  Sex: Male

DRUGS (2)
  1. ALAVERT D-12 (LORATADINE/PSEUDOEPHEDRINE SULFATE, TABLET, EXTENDED REL [Suspect]
     Dosage: 1 TABLET DAILY, ORAL
     Route: 048
  2. VICKS DAYQUIL (DEXTROMETHORPHAN HYDROBROMIDE/GUAIFENESIN/PARACETAMOL/P [Concomitant]

REACTIONS (2)
  - NERVOUSNESS [None]
  - TENSION [None]
